FAERS Safety Report 13519398 (Version 1)
Quarter: 2017Q2

REPORT INFORMATION
  Report Type: Report from Study
  Country: US (occurrence: US)
  Receive Date: 20170505
  Receipt Date: 20170505
  Transmission Date: 20170830
  Serious: Yes (Hospitalization)
  Sender: FDA-Public Use
  Company Number: US-ACTELION-A-US2017-153292

PATIENT
  Age: 57 Year
  Sex: Female
  Weight: 68.27 kg

DRUGS (3)
  1. PREDNISONE. [Suspect]
     Active Substance: PREDNISONE
     Indication: PRODUCT USED FOR UNKNOWN INDICATION
     Route: 065
  2. OPSUMIT [Suspect]
     Active Substance: MACITENTAN
     Indication: PULMONARY ARTERIAL HYPERTENSION
     Dosage: 10 MG, QD
     Route: 048
  3. SILDENAFIL. [Concomitant]
     Active Substance: SILDENAFIL

REACTIONS (6)
  - Overdose [Recovering/Resolving]
  - Biopsy chest wall [Unknown]
  - Hallucination [Recovering/Resolving]
  - Anxiety [Recovering/Resolving]
  - Incoherent [Recovering/Resolving]
  - Insomnia [Recovering/Resolving]
